FAERS Safety Report 7146551-0 (Version None)
Quarter: 2010Q4

REPORT INFORMATION
  Report Type: 
  Country: None (occurrence: None)
  Receive Date: 20101208
  Receipt Date: 20101203
  Transmission Date: 20110411
  Serious: Yes (Other)
  Sender: FDA-Public Use
  Company Number: US-PFIZER INC-US-WYE-H17364610

PATIENT
  Sex: Female
  Weight: 81.633 kg

DRUGS (2)
  1. PRISTIQ [Suspect]
     Indication: BIPOLAR I DISORDER
     Dosage: 50 MG, 1X/DAY
     Route: 048
     Dates: start: 20100715, end: 20100801
  2. PRISTIQ [Suspect]
     Dosage: 25 MG, 1X/DAY
     Route: 048
     Dates: start: 20100801

REACTIONS (1)
  - CARDIAC FLUTTER [None]
